FAERS Safety Report 5277252-1 (Version None)
Quarter: 2007Q1

REPORT INFORMATION
  Report Type: 
  Country: None (occurrence: None)
  Receive Date: 20070327
  Receipt Date: 20070326
  Transmission Date: 20070707
  Serious: Yes (Hospitalization)
  Sender: FDA-Public Use
  Company Number: HQWYE420107SEP06

PATIENT
  Age: 34 Year
  Sex: Female

DRUGS (6)
  1. SIROLIMUS [Suspect]
     Indication: IMMUNOSUPPRESSANT DRUG THERAPY
     Dosage: NOT SPECIFIED
     Route: 065
     Dates: start: 20030101, end: 20050101
  2. MYCOPHENOLATE MOFETIL [Concomitant]
  3. ATENOLOL [Concomitant]
     Indication: HYPERTENSION
  4. SIMVASTATIN [Concomitant]
     Indication: DYSLIPIDAEMIA
  5. FUROSEMIDE [Concomitant]
     Indication: HYPERTENSION
  6. LOSARTAN POSTASSIUM [Concomitant]
     Indication: HYPERTENSION

REACTIONS (1)
  - ALVEOLAR PROTEINOSIS [None]
